FAERS Safety Report 16157212 (Version 1)
Quarter: 2019Q2

REPORT INFORMATION
  Report Type: Spontaneous
  Country: JP (occurrence: JP)
  Receive Date: 20190404
  Receipt Date: 20190404
  Transmission Date: 20190711
  Serious: Yes (Hospitalization)
  Sender: FDA-Public Use
  Company Number: JP-BAYER-2019-023652

PATIENT
  Age: 75 Year
  Sex: Male
  Weight: 49 kg

DRUGS (9)
  1. MARIZEV [Concomitant]
  2. AMINOVACT [Concomitant]
  3. KATIV N [Concomitant]
  4. NEXAVAR [Suspect]
     Active Substance: SORAFENIB
     Indication: HEPATOCELLULAR CARCINOMA
     Dosage: 400 MG, QD
     Route: 048
     Dates: start: 20181208, end: 20190119
  5. ESOMEPRAZOLE. [Concomitant]
     Active Substance: ESOMEPRAZOLE MAGNESIUM
  6. MOSAPRIDE CITRATE DIHYDRATE [Concomitant]
     Active Substance: MOSAPRIDE CITRATE DIHYDRATE
  7. MAGMITT [Concomitant]
     Active Substance: MAGNESIUM OXIDE
  8. URSODEOXYCHOLIC ACID [Concomitant]
     Active Substance: URSODIOL
  9. MIYA-BM [Concomitant]
     Active Substance: CLOSTRIDIUM BUTYRICUM SPORES STRAIN M-55

REACTIONS (5)
  - Hepatocellular carcinoma [Not Recovered/Not Resolved]
  - Eczema [Recovered/Resolved]
  - Pyrexia [Recovered/Resolved]
  - Palmar-plantar erythrodysaesthesia syndrome [Recovered/Resolved]
  - Alopecia [Not Recovered/Not Resolved]

NARRATIVE: CASE EVENT DATE: 20181211
